FAERS Safety Report 6737898-8 (Version None)
Quarter: 2010Q2

REPORT INFORMATION
  Report Type: 
  Country: None (occurrence: None)
  Receive Date: 20100524
  Receipt Date: 20100511
  Transmission Date: 20101027
  Serious: Yes (Hospitalization)
  Sender: FDA-Public Use
  Company Number: PHHY2010ES30172

PATIENT
  Sex: Male

DRUGS (9)
  1. VOLTAREN [Suspect]
     Dosage: 50 MG, UNK
     Route: 048
     Dates: start: 20061201
  2. SEGURIL [Suspect]
     Dosage: 160 MG, UNK
     Route: 048
  3. SPIRONOLACTONE [Suspect]
     Dosage: 25 MG, UNK
     Route: 048
  4. OLMESARTAN MEDOXOMIL [Suspect]
     Indication: HYPERTENSION
     Dosage: 20 MG, UNK
     Route: 048
     Dates: start: 20090623
  5. LYRICA [Concomitant]
     Dosage: UNK
  6. PARIET [Concomitant]
     Dosage: UNK
  7. VARIDASA [Concomitant]
     Dosage: UNK
  8. OMNIC [Concomitant]
     Dosage: UNK
  9. NITRODERM [Concomitant]
     Dosage: UNK

REACTIONS (5)
  - ANURIA [None]
  - DIARRHOEA [None]
  - FAECES DISCOLOURED [None]
  - RENAL FAILURE ACUTE [None]
  - SHOCK [None]
